FAERS Safety Report 9659149 (Version 1)
Quarter: 2013Q4

REPORT INFORMATION
  Report Type: Report from Study
  Country: US (occurrence: US)
  Receive Date: 20131031
  Receipt Date: 20131031
  Transmission Date: 20140711
  Serious: Yes (Death)
  Sender: FDA-Public Use
  Company Number: GXBR2013US001871

PATIENT
  Age: 78 Year
  Sex: Male

DRUGS (2)
  1. ENOXAPARIN SODIUM [Suspect]
     Indication: DEEP VEIN THROMBOSIS
     Dosage: 100 MG, Q12H
     Route: 058
  2. ENOXAPARIN SODIUM [Suspect]
     Indication: PULMONARY EMBOLISM

REACTIONS (2)
  - Sepsis [Fatal]
  - Pelvic infection [Not Recovered/Not Resolved]
